FAERS Safety Report 9478960 (Version 1)
Quarter: 2013Q3

REPORT INFORMATION
  Report Type: Spontaneous
  Country: IT (occurrence: IT)
  Receive Date: 20130827
  Receipt Date: 20130827
  Transmission Date: 20140515
  Serious: Yes (Other)
  Sender: FDA-Public Use
  Company Number: IT-TEVA-428090ISR

PATIENT
  Age: 79 Year
  Sex: Female

DRUGS (6)
  1. LORAZEPAM [Suspect]
     Indication: DEPRESSION
     Dosage: 1 DOSAGE FORMS DAILY;
     Route: 048
     Dates: start: 20130101, end: 20130616
  2. LORMETAZEPAM [Suspect]
     Indication: DEPRESSION
     Dosage: 10 GTT DAILY; SOLUTION FOR ORAL DROPS
     Route: 048
     Dates: start: 20130101, end: 20130616
  3. TAVOR [Suspect]
     Indication: DEPRESSION
     Dosage: 1 DOSAGE FORMS DAILY; OROSOLUBLE TABLET
     Route: 048
     Dates: start: 20130101, end: 20130616
  4. ENALAPRIL [Concomitant]
     Dosage: 20 MILLIGRAM DAILY;
     Route: 048
  5. LANSOX 15 MG [Concomitant]
     Route: 048
  6. CARDIOASPIRIN 100 MG [Concomitant]
     Dosage: GASTRO-RESISTANT TABLETS
     Route: 048

REACTIONS (5)
  - Dizziness [Unknown]
  - Wrist fracture [Unknown]
  - Head injury [Unknown]
  - Contusion [Unknown]
  - Fall [Unknown]
